FAERS Safety Report 10362657 (Version 1)
Quarter: 2014Q1

REPORT INFORMATION
  Report Type: Spontaneous
  Country: US (occurrence: None)
  Receive Date: 20140306
  Receipt Date: 20140306
  Transmission Date: 20141002
  Serious: Yes (Life-Threatening, Hospitalization, Other)
  Sender: FDA-Public Use
  Company Number: 163-21880-13021285

PATIENT
  Age: 72 Year
  Sex: Female
  Weight: 42.18 kg

DRUGS (28)
  1. REVLIMID [Suspect]
     Indication: PLASMA CELL MYELOMA
     Route: 048
     Dates: start: 201204, end: 201204
  2. VITAMINS [Concomitant]
  3. B12 VITAMINS [Concomitant]
  4. BENADRYL (DIPHENHYDRAMINE HYDROCHLORIDE) [Concomitant]
  5. BENADRYL (DIPHENHYDRAMINE HYDROCHLORIDE) [Concomitant]
  6. DEXAMETHASONE [Concomitant]
  7. DRISCOL [Concomitant]
  8. FOSRENOL [Concomitant]
  9. HYDRALAZINE HCL [Suspect]
  10. LORTAB [Concomitant]
  11. MAGIC MOUTHWASH (STOMATOLOGICALS, MOUTH PREPARATIONS) [Concomitant]
  12. METOPROLOL TARTRATE [Concomitant]
  13. NEPHROCAPS (NEPHROCAPS) [Concomitant]
  14. PANTOPRAZOLE SODIUM) [Concomitant]
  15. PROMETHAZINE HCL (PROMETHAZINE HYDROCHLORIDE) [Concomitant]
  16. SENSIPAR (CINACALCET HYDROCHLORIDE) [Concomitant]
  17. SODIUM BICARBONATE [Concomitant]
  18. TYLENOL (PARACETAMOL) [Concomitant]
  19. ULTRAM (TRAMADOL HYDROCHLORIDE) [Concomitant]
  20. AMLODIPINE [Concomitant]
  21. ASPIRIN (ACETYLSALICYLIC ACID) [Concomitant]
  22. CLOBETASOL + CLOBETASOL EMUL (CLOBETASOL) [Concomitant]
  23. COLACE (DOCUSATE SODIUM) [Concomitant]
  24. FERROUS SULFATE [Concomitant]
  25. LISINOPRIL [Concomitant]
  26. PAXIL (PAROXETINE HYDROCHLORIDE) [Concomitant]
  27. TEMAZEPAM [Concomitant]
  28. XANAX (ALPRAZOLAM) [Concomitant]

REACTIONS (5)
  - Cardiac failure congestive [None]
  - Thrombocytopenia [None]
  - Dysgeusia [None]
  - Anaemia [None]
  - Rash erythematous [None]
